FAERS Safety Report 5801303-6 (Version None)
Quarter: 2008Q3

REPORT INFORMATION
  Report Type: 
  Country: None (occurrence: None)
  Receive Date: 20080703
  Receipt Date: 20080703
  Transmission Date: 20090109
  Serious: No
  Sender: FDA-Public Use
  Company Number: None

PATIENT
  Age: 38 Year
  Sex: Male
  Weight: 81.6475 kg

DRUGS (1)
  1. CEPHALEXIN [Suspect]
     Indication: FURUNCLE
     Dosage: 1 CAPSULE 4 TIMES DAILY BY MOUTH
     Route: 048
     Dates: start: 20011231

REACTIONS (1)
  - ABDOMINAL PAIN UPPER [None]
